FAERS Safety Report 11692618 (Version 1)
Quarter: 2015Q4

REPORT INFORMATION
  Report Type: Spontaneous
  Country: US (occurrence: None)
  Receive Date: 20151102
  Receipt Date: 20151102
  Transmission Date: 20160304
  Serious: No
  Sender: FDA-Public Use
  Company Number: None

PATIENT
  Age: 59 Year
  Sex: Female

DRUGS (1)
  1. IBRANCE [Suspect]
     Active Substance: PALBOCICLIB
     Indication: BREAST CANCER
     Dosage: 21 DAYS
     Route: 048
     Dates: start: 20150929

REACTIONS (2)
  - Abdominal discomfort [None]
  - Night sweats [None]

NARRATIVE: CASE EVENT DATE: 20151029
